FAERS Safety Report 13491124 (Version 1)
Quarter: 2017Q2

REPORT INFORMATION
  Report Type: Spontaneous
  Country: DE (occurrence: DE)
  Receive Date: 20170427
  Receipt Date: 20170427
  Transmission Date: 20170830
  Serious: Yes (Other)
  Sender: FDA-Public Use
  Company Number: DE-009507513-1704DEU013604

PATIENT
  Sex: Male

DRUGS (2)
  1. SIMVASTATIN. [Suspect]
     Active Substance: SIMVASTATIN
     Dosage: ONE TABLET DAILY
  2. AMLODIPIN 1A FARMA [Suspect]
     Active Substance: AMLODIPINE BESYLATE
     Dosage: 5 MG, QD

REACTIONS (4)
  - Cardiac disorder [Unknown]
  - Bradycardia [Unknown]
  - Arrhythmia [Unknown]
  - Extrasystoles [Unknown]
